FAERS Safety Report 25982752 (Version 1)
Quarter: 2025Q4

REPORT INFORMATION
  Report Type: Other
  Country: EU (occurrence: EU)
  Receive Date: 20251031
  Receipt Date: 20251031
  Transmission Date: 20260117
  Serious: Yes (Other)
  Sender: Steriscience PTE
  Company Number: None

PATIENT
  Age: 64 Year
  Sex: Female

DRUGS (4)
  1. MEROPENEM [Suspect]
     Active Substance: MEROPENEM
     Indication: Product used for unknown indication
     Dosage: 2 GRAM, Q8H
     Route: 042
     Dates: start: 20250826, end: 20250828
  2. VANCOMYCIN [Suspect]
     Active Substance: VANCOMYCIN
     Indication: Subdural abscess
     Dosage: 1 GRAM, BID
     Route: 042
     Dates: start: 20250826, end: 20250904
  3. LEVETIRACETAM [Suspect]
     Active Substance: LEVETIRACETAM
     Indication: Product used for unknown indication
     Dosage: 500 MILLIGRAM, BID
     Route: 042
     Dates: start: 20250826, end: 20250904
  4. PIPERACILLIN SODIUM\TAZOBACTAM SODIUM [Suspect]
     Active Substance: PIPERACILLIN SODIUM\TAZOBACTAM SODIUM
     Indication: Product used for unknown indication
     Dosage: 4 GRAM, Q6H
     Route: 042
     Dates: start: 20250827, end: 20250827

REACTIONS (1)
  - Linear IgA disease [None]

NARRATIVE: CASE EVENT DATE: 20250904
